FAERS Safety Report 11133512 (Version 2)
Quarter: 2016Q1

REPORT INFORMATION
  Report Type: Spontaneous
  Country: TR (occurrence: TR)
  Receive Date: 20150523
  Receipt Date: 20160212
  Transmission Date: 20160525
  Serious: Yes (Hospitalization)
  Sender: FDA-Public Use
  Company Number: TR-ACCORD-030884

PATIENT
  Age: 45 Year
  Sex: Female

DRUGS (3)
  1. TRAMADOL/TRAMADOL HYDROCHLORIDE [Suspect]
     Active Substance: TRAMADOL HYDROCHLORIDE
     Indication: PAIN
     Route: 042
  2. BUPIVACAINE [Concomitant]
     Active Substance: BUPIVACAINE
     Indication: SPINAL ANAESTHESIA
  3. CEFAZOLIN [Suspect]
     Active Substance: CEFAZOLIN
     Indication: PREMEDICATION
     Route: 042

REACTIONS (4)
  - Generalised erythema [Recovered/Resolved]
  - Urticaria [Recovered/Resolved]
  - Kounis syndrome [Recovered/Resolved]
  - Hypersensitivity [Recovered/Resolved]
